FAERS Safety Report 16352432 (Version 1)
Quarter: 2019Q2

REPORT INFORMATION
  Report Type: Spontaneous
  Country: FR (occurrence: FR)
  Receive Date: 20190524
  Receipt Date: 20190524
  Transmission Date: 20190711
  Serious: Yes (Hospitalization)
  Sender: FDA-Public Use
  Company Number: FR-009507513-1905FRA010139

PATIENT
  Age: 77 Year
  Sex: Female
  Weight: 56 kg

DRUGS (15)
  1. KEYTRUDA [Suspect]
     Active Substance: PEMBROLIZUMAB
     Indication: MALIGNANT MELANOMA
     Dosage: 2 MILLIGRAM/KILOGRAM, EVERY 4 WEEKS
     Route: 042
     Dates: start: 20150129, end: 20160325
  2. KARDEGIC [Concomitant]
     Active Substance: ASPIRIN DL-LYSINE
  3. DIFFU-K [Concomitant]
     Active Substance: POTASSIUM CHLORIDE
  4. MACROGOL HEXAL [Concomitant]
     Active Substance: ETHYLENE GLYCOL
  5. DOLIPRANE [Concomitant]
     Active Substance: ACETAMINOPHEN
  6. FENTANYL. [Concomitant]
     Active Substance: FENTANYL
  7. RYTHMODAN [Concomitant]
     Active Substance: DISOPYRAMIDE
     Dosage: UNK
  8. XGEVA [Concomitant]
     Active Substance: DENOSUMAB
  9. BI-PROFENID [Concomitant]
     Active Substance: KETOPROFEN
  10. EUPANTOL [Concomitant]
     Active Substance: PANTOPRAZOLE SODIUM
  11. MEDIATENSYL [Concomitant]
     Active Substance: URAPIDIL
  12. LYRICA [Concomitant]
     Active Substance: PREGABALIN
  13. HYDROCORTISONE. [Concomitant]
     Active Substance: HYDROCORTISONE
  14. VOGALENE [Concomitant]
     Active Substance: METOPIMAZINE
  15. COVERAM [Concomitant]
     Active Substance: AMLODIPINE\PERINDOPRIL

REACTIONS (1)
  - Neuropathy peripheral [Not Recovered/Not Resolved]

NARRATIVE: CASE EVENT DATE: 20160225
